FAERS Safety Report 7509412-0 (Version None)
Quarter: 2011Q2

REPORT INFORMATION
  Report Type: 
  Country: None (occurrence: None)
  Receive Date: 20110527
  Receipt Date: 20110525
  Transmission Date: 20111010
  Serious: Yes (Life-Threatening, Hospitalization)
  Sender: FDA-Public Use
  Company Number: PHHY2011GB44629

PATIENT
  Sex: Female

DRUGS (1)
  1. METRONIDAZOLE [Suspect]
     Indication: INFECTION
     Dosage: 500 MG, UNK
     Route: 042
     Dates: start: 20110420, end: 20110427

REACTIONS (1)
  - TOXIC ENCEPHALOPATHY [None]
